FAERS Safety Report 19772241 (Version 1)
Quarter: 2021Q3

REPORT INFORMATION
  Report Type: Spontaneous
  Country: GB (occurrence: GB)
  Receive Date: 20210901
  Receipt Date: 20210901
  Transmission Date: 20211014
  Serious: Yes (Other)
  Sender: FDA-Public Use
  Company Number: GB-PFIZER INC-202101069132

PATIENT
  Age: 58 Year
  Sex: Female
  Weight: 53 kg

DRUGS (1)
  1. ESTRADIOL. [Suspect]
     Active Substance: ESTRADIOL
     Indication: ATROPHIC VULVOVAGINITIS
     Dosage: 146 MG
     Route: 067
     Dates: start: 20210717, end: 20210817

REACTIONS (1)
  - Vulvovaginal injury [Not Recovered/Not Resolved]

NARRATIVE: CASE EVENT DATE: 20210717
